FAERS Safety Report 7511137-2 (Version None)
Quarter: 2011Q2

REPORT INFORMATION
  Report Type: 
  Country: None (occurrence: None)
  Receive Date: 20110519
  Receipt Date: 20110510
  Transmission Date: 20111010
  Serious: Yes (Life-Threatening)
  Sender: FDA-Public Use
  Company Number: 913837

PATIENT
  Age: 70 Year
  Sex: Female

DRUGS (5)
  1. CYCLOPHOSPHAMIDE [Suspect]
     Indication: LYMPHOMA
  2. ADRIAMYCIN PFS [Suspect]
     Indication: LYMPHOMA
  3. VINCRISTINE SULFATE [Suspect]
     Indication: LYMPHOMA
  4. RITUXIMAB [Suspect]
     Indication: LYMPHOMA
  5. PREDNISOLONE [Suspect]
     Indication: LYMPHOMA

REACTIONS (2)
  - VENTRICULAR TACHYCARDIA [None]
  - MYOCARDIAL FIBROSIS [None]
